FAERS Safety Report 6226720-4 (Version None)
Quarter: 2009Q2

REPORT INFORMATION
  Report Type: 
  Country: None (occurrence: None)
  Receive Date: 20090612
  Receipt Date: 20090608
  Transmission Date: 20091009
  Serious: Yes (Death, Disabling)
  Sender: FDA-Public Use
  Company Number: PT-ROCHE-634787

PATIENT
  Age: 84 Year
  Sex: Male

DRUGS (1)
  1. XELODA [Suspect]
     Dosage: FREQUENCY REPORTED AS TWICE/ DAY DURING 14 DAYS, EVERY 3 WEEKS.
     Route: 065
     Dates: end: 20090518

REACTIONS (3)
  - DEATH [None]
  - DIARRHOEA [None]
  - VOMITING [None]
